FAERS Safety Report 9320559 (Version 3)
Quarter: 2013Q3

REPORT INFORMATION
  Report Type: Spontaneous
  Country: SE (occurrence: SE)
  Receive Date: 20130531
  Receipt Date: 20130716
  Transmission Date: 20140515
  Serious: Yes (Hospitalization, Other)
  Sender: FDA-Public Use
  Company Number: SE-ROCHE-1230606

PATIENT
  Age: 68 Year
  Sex: Male

DRUGS (5)
  1. MABTHERA [Suspect]
     Indication: PRODUCT USED FOR UNKNOWN INDICATION
     Dosage: WEEKLY FOR 4 WEEKS
     Route: 017
     Dates: start: 20130103, end: 20130124
  2. TROMBYL [Concomitant]
  3. LYRICA [Concomitant]
  4. ALFUZOSIN [Concomitant]
  5. BEHEPAN [Concomitant]

REACTIONS (7)
  - Central nervous system inflammation [Recovered/Resolved]
  - Hiccups [Unknown]
  - Nausea [Unknown]
  - Vomiting [Unknown]
  - Nervous system disorder [Recovered/Resolved]
  - Dizziness [Unknown]
  - Hallucination [Unknown]
